FAERS Safety Report 7654080-0 (Version None)
Quarter: 2011Q3

REPORT INFORMATION
  Report Type: 
  Country: None (occurrence: None)
  Receive Date: 20110803
  Receipt Date: 20110725
  Transmission Date: 20111222
  Serious: Yes (Other)
  Sender: FDA-Public Use
  Company Number: US-ASTRAZENECA-2011SE44560

PATIENT
  Age: 64 Year
  Sex: Male

DRUGS (1)
  1. CRESTOR [Suspect]
     Route: 048

REACTIONS (6)
  - LACERATION [None]
  - HYPERTENSION [None]
  - STEM CELL TRANSPLANT [None]
  - NEOPLASM MALIGNANT [None]
  - MALAISE [None]
  - DIABETES MELLITUS [None]
